FAERS Safety Report 16525661 (Version 2)
Quarter: 2019Q3

REPORT INFORMATION
  Report Type: Spontaneous
  Country: US (occurrence: US)
  Receive Date: 20190703
  Receipt Date: 20190729
  Transmission Date: 20191004
  Serious: Yes (Other)
  Sender: FDA-Public Use
  Company Number: US-SA-2019SA175580

PATIENT
  Age: 43 Year
  Sex: Female
  Weight: 116 kg

DRUGS (8)
  1. MOMETASON [Concomitant]
     Active Substance: MOMETASONE FUROATE
  2. DUPIXENT [Suspect]
     Active Substance: DUPILUMAB
     Indication: DERMATITIS ATOPIC
     Dosage: UNK
     Dates: start: 2017, end: 2018
  3. ESCITALOPRAM [Concomitant]
     Active Substance: ESCITALOPRAM OXALATE
  4. LAMOTRIGINE. [Concomitant]
     Active Substance: LAMOTRIGINE
  5. ROPINIROLE. [Concomitant]
     Active Substance: ROPINIROLE
  6. AMLODIPINE [Concomitant]
     Active Substance: AMLODIPINE BESYLATE
  7. METOPROLOL. [Concomitant]
     Active Substance: METOPROLOL
  8. DUPIXENT [Suspect]
     Active Substance: DUPILUMAB
     Dosage: 300 MG, QOW
     Route: 058
     Dates: start: 20190225

REACTIONS (1)
  - Serum sickness [Unknown]

NARRATIVE: CASE EVENT DATE: 20190617
